FAERS Safety Report 20965194 (Version 2)
Quarter: 2022Q3

REPORT INFORMATION
  Report Type: Other
  Country: IT (occurrence: IT)
  Receive Date: 20220616
  Receipt Date: 20220719
  Transmission Date: 20221027
  Serious: Yes (Death)
  Sender: FDA-Public Use
  Company Number: IT-CELLTRION HEALTHCARE HUNGARY KFT-2022IT008005

PATIENT

DRUGS (41)
  1. RITUXIMAB [Suspect]
     Active Substance: RITUXIMAB
     Indication: High-grade B-cell lymphoma
     Dosage: 375 MG/M2, INTENSIFICATION PHASE 7 + 8 WEEK ON DAYS 3 AND 10, CONCENTRATE FOR SOLUTION FOR INFUSION
     Route: 041
  2. RITUXIMAB [Suspect]
     Active Substance: RITUXIMAB
     Indication: Burkitt^s lymphoma
     Dosage: 375 MG/M2, HIV-POSITIVE CONSOLIDATION PHASE (DAY 52, 60), CONCENTRATE FOR SOLUTION FOR INFUSION
     Route: 041
  3. RITUXIMAB [Suspect]
     Active Substance: RITUXIMAB
     Dosage: 375 MG/M2, HIV-NEGATIVE CONSOLIDATION PHASE (DAY 56), CONCENTRATE FOR SOLUTION FOR INFUSION
     Route: 041
  4. RITUXIMAB [Suspect]
     Active Substance: RITUXIMAB
     Dosage: 375 MG/M2, INTENSIFICATION PHASE 11 + 12 WEEK ON DAYS -1 AND 11, CONCENTRATE FOR SOLUTION FOR INFUSI
     Route: 041
  5. RITUXIMAB [Suspect]
     Active Substance: RITUXIMAB
     Dosage: 375 MG/M2, INDUCTION PHASE (DAY 2, 14, 29, 36), CONCENTRATE FOR SOLUTION FOR INFUSION
     Route: 041
  6. CYTARABINE [Suspect]
     Active Substance: CYTARABINE
     Indication: High-grade B-cell lymphoma
     Dosage: 2 G/M2 IN A 3-HOUR INFUSION, TWICE A DAY (EVERY 12 HOURS) (HIV POSITIVE CONSOLIDATION PHASE DAY 50-5
     Route: 065
  7. CYTARABINE [Suspect]
     Active Substance: CYTARABINE
     Indication: Burkitt^s lymphoma
     Dosage: 200 MG/M2 EVERY 12 HOURS (BEAM REGIMEN DAYS 2-5)
     Route: 065
  8. CYTARABINE [Suspect]
     Active Substance: CYTARABINE
     Dosage: CONVENTIONAL TRIPLE-DRUG INTRATHECAL CHEMOTHERAPY (METHOTREXATE 12 MG + CYTARABINE 50 MG + HYDROCORT
     Route: 037
  9. CYTARABINE [Suspect]
     Active Substance: CYTARABINE
     Dosage: 50 MG + METHOTREXATE + STEROIDS (INDUCTION PHASE DAY 5, 19, 33)
     Route: 065
  10. CYTARABINE [Suspect]
     Active Substance: CYTARABINE
     Dosage: 2 G/M2 EVERY 12 HOURS FOR FOUR DAYS, INTENSIFICATION PHASE 11 + 12 WEEK (DAYS -5 TO -2)
     Route: 065
  11. CYTARABINE [Suspect]
     Active Substance: CYTARABINE
     Dosage: 750 MG/M2 FOLLOWED 3 HOURS LATER BY 1 G/M2 BY 24-HOUR INFUSION (HIV NEGATIVE CONSOLIDATION PHASE DAY
     Route: 065
  12. ETOPOSIDE [Suspect]
     Active Substance: ETOPOSIDE
     Indication: High-grade B-cell lymphoma
     Dosage: 100 MG/M2 EVERY 12 HOURS (BEAM REGIMEN DAYS 2-5)
     Route: 065
  13. ETOPOSIDE [Suspect]
     Active Substance: ETOPOSIDE
     Indication: Burkitt^s lymphoma
     Dosage: 250 MG/M2 EVERY 12 HOURS (INDUCTION PHASE DAY 15)
     Route: 065
  14. CYCLOPHOSPHAMIDE [Suspect]
     Active Substance: CYCLOPHOSPHAMIDE
     Indication: Burkitt^s lymphoma
     Dosage: 500 MG/M2 OVER 1 HOUR INFUSION, INDUCTION PHASE (DAY 0, 1)
     Route: 065
  15. CYCLOPHOSPHAMIDE [Suspect]
     Active Substance: CYCLOPHOSPHAMIDE
     Indication: High-grade B-cell lymphoma
     Dosage: 4 G/M2 (INTENSIFICATION PHASE: 7 + 8 WEEK)
     Route: 065
  16. METHOTREXATE [Suspect]
     Active Substance: METHOTREXATE
     Indication: Burkitt^s lymphoma
     Dosage: 12 MG + CYTARABINE + STEROIDS (INDUCTION PHASE DAY 5, 19, 33)
     Route: 065
  17. METHOTREXATE [Suspect]
     Active Substance: METHOTREXATE
     Indication: High-grade B-cell lymphoma
     Dosage: CONVENTIONAL TRIPLE-DRUG INTRATHECAL CHEMOTHERAPY (METHOTREXATE 12 MG + CYTARABINE 50 MG + HYDROCORT
     Route: 037
  18. METHOTREXATE [Suspect]
     Active Substance: METHOTREXATE
     Dosage: 3 G/M2 IV. OVER 6 HOURS WITH LEUCOVORIN RESCUE THERAPY (INDUCTION PHASE DAY 7, 21)
     Route: 042
  19. HYDROCORTISONE [Suspect]
     Active Substance: HYDROCORTISONE
     Indication: Burkitt^s lymphoma
     Dosage: CONVENTIONAL TRIPLE-DRUG INTRATHECAL CHEMOTHERAPY (METHOTREXATE 12 MG + CYTARABINE 50 MG + HYDROCORT
     Route: 037
  20. HYDROCORTISONE [Suspect]
     Active Substance: HYDROCORTISONE
     Indication: High-grade B-cell lymphoma
  21. GRANULOCYTE COLONY-STIMULATING FACTOR NOS [Suspect]
     Active Substance: GRANULOCYTE COLONY-STIMULATING FACTOR NOS
     Indication: High-grade B-cell lymphoma
     Dosage: AFTER METHOTREXATE (DAY 21) AND ETOPOSIDE (DAY 15)
     Route: 065
  22. GRANULOCYTE COLONY-STIMULATING FACTOR NOS [Suspect]
     Active Substance: GRANULOCYTE COLONY-STIMULATING FACTOR NOS
     Indication: Burkitt^s lymphoma
  23. LEUCOVORIN CALCIUM [Suspect]
     Active Substance: LEUCOVORIN CALCIUM
     Indication: High-grade B-cell lymphoma
     Dosage: 15 MG/M2 I.V. STARTING 24 HOURS AFTER COMPLETING METHOTREXATE INFUSION, AND CONTINUED EVERY 6 HOURS
     Route: 065
  24. LEUCOVORIN CALCIUM [Suspect]
     Active Substance: LEUCOVORIN CALCIUM
     Indication: Burkitt^s lymphoma
  25. METHYLPREDNISOLONE [Suspect]
     Active Substance: METHYLPREDNISOLONE
     Indication: High-grade B-cell lymphoma
     Dosage: 0.5-1 MG/KG/D I.V. (INDUCTION PHASE DAY -2, -1, 0, 1)
     Route: 042
  26. METHYLPREDNISOLONE [Suspect]
     Active Substance: METHYLPREDNISOLONE
     Indication: Burkitt^s lymphoma
  27. CARMUSTINE [Suspect]
     Active Substance: CARMUSTINE
     Indication: High-grade B-cell lymphoma
     Dosage: 300 MG/M2, BEAM REGIMEN DAY 1
     Route: 065
  28. CARMUSTINE [Suspect]
     Active Substance: CARMUSTINE
     Indication: Burkitt^s lymphoma
  29. CARBOPLATIN [Suspect]
     Active Substance: CARBOPLATIN
     Indication: Disease progression
     Dosage: INTENSIFICATION PHASE: ONE OR TWO COURSES OF R-IVAC OR R-ICE ON 1 + 4 WEEK
     Route: 065
  30. CARBOPLATIN [Suspect]
     Active Substance: CARBOPLATIN
     Indication: Burkitt^s lymphoma
  31. CARBOPLATIN [Suspect]
     Active Substance: CARBOPLATIN
     Indication: High-grade B-cell lymphoma
  32. IFOSFAMIDE [Suspect]
     Active Substance: IFOSFAMIDE
     Indication: Disease progression
     Dosage: ONE OR TWO COURSES OF R-IVAC OR R-ICE (DEBULKING CHEMOTHERAPY), INTENSIFICATION PHASE 1 + 4 WEEK
     Route: 065
  33. VINCRISTINE [Suspect]
     Active Substance: VINCRISTINE
     Indication: High-grade B-cell lymphoma
     Dosage: 2 MG TOTAL DOSE I.V. BOLUS (INDUCTION PHASE DAY 0, 36)
     Route: 040
  34. VINCRISTINE [Suspect]
     Active Substance: VINCRISTINE
     Indication: Burkitt^s lymphoma
  35. MELPHALAN [Suspect]
     Active Substance: MELPHALAN
     Indication: Burkitt^s lymphoma
     Dosage: 140 MG/M2, BEAM REGIMEN DAY 6
     Route: 065
  36. MELPHALAN [Suspect]
     Active Substance: MELPHALAN
     Indication: High-grade B-cell lymphoma
  37. CISPLATIN [Suspect]
     Active Substance: CISPLATIN
     Indication: Burkitt^s lymphoma
     Dosage: 20 MG/M2/D BY 24-HOUR INFUSION (HIV NEGATIVE CONSOLIDATION PHASE DAY 50-53)
     Route: 065
  38. CISPLATIN [Suspect]
     Active Substance: CISPLATIN
     Indication: High-grade B-cell lymphoma
  39. FOTEMUSTINE [Suspect]
     Active Substance: FOTEMUSTINE
     Indication: Burkitt^s lymphoma
     Dosage: CARMUSTINE WAS REPLACED BY FOTEMUSTINE 150 MG/M2/D DAYS 1
     Route: 065
  40. FOTEMUSTINE [Suspect]
     Active Substance: FOTEMUSTINE
     Indication: High-grade B-cell lymphoma
  41. DOXORUBICIN [Suspect]
     Active Substance: DOXORUBICIN
     Indication: Burkitt^s lymphoma
     Dosage: 50 MG/M2 I.V. BOLUS (INDUCTION PHASE DAY 29)
     Route: 040

REACTIONS (24)
  - Hepatotoxicity [Fatal]
  - Tumour lysis syndrome [Fatal]
  - Neutropenia [Fatal]
  - Lymphoma [Fatal]
  - Mucosal inflammation [Fatal]
  - Cardiotoxicity [Fatal]
  - Anaemia [Fatal]
  - Acute myeloid leukaemia [Fatal]
  - Disease progression [Fatal]
  - Diarrhoea [Fatal]
  - Disease recurrence [Fatal]
  - Headache [Fatal]
  - Acute respiratory distress syndrome [Fatal]
  - Febrile neutropenia [Fatal]
  - Bacterial infection [Fatal]
  - Cerebrovascular accident [Fatal]
  - COVID-19 [Fatal]
  - Vomiting [Fatal]
  - Thrombocytopenia [Fatal]
  - Therapy partial responder [Fatal]
  - Intestinal obstruction [Fatal]
  - Cytomegalovirus infection [Fatal]
  - Sepsis [Fatal]
  - Off label use [Fatal]
